FAERS Safety Report 23887532 (Version 1)
Quarter: 2024Q2

REPORT INFORMATION
  Report Type: Report from Study
  Country: US (occurrence: US)
  Receive Date: 20240523
  Receipt Date: 20240523
  Transmission Date: 20240716
  Serious: Yes (Hospitalization, Other)
  Sender: FDA-Public Use
  Company Number: US-ABBVIE-5769417

PATIENT
  Age: 72 Year
  Sex: Male

DRUGS (2)
  1. DUOPA [Suspect]
     Active Substance: CARBIDOPA\LEVODOPA
     Indication: Parkinson^s disease
     Route: 050
     Dates: start: 20240517
  2. DUOPA [Suspect]
     Active Substance: CARBIDOPA\LEVODOPA

REACTIONS (5)
  - Surgery [Unknown]
  - Stoma site haemorrhage [Unknown]
  - Procedural pain [Unknown]
  - Parkinson^s disease [Unknown]
  - Back pain [Unknown]

NARRATIVE: CASE EVENT DATE: 20240501
